FAERS Safety Report 20750283 (Version 1)
Quarter: 2022Q2

REPORT INFORMATION
  Report Type: Spontaneous
  Country: GB (occurrence: GB)
  Receive Date: 20220426
  Receipt Date: 20220426
  Transmission Date: 20220720
  Serious: Yes (Other)
  Sender: FDA-Public Use
  Company Number: None

PATIENT
  Age: 56 Year
  Sex: Female
  Weight: 65.8 kg

DRUGS (1)
  1. RITUXIMAB [Suspect]
     Active Substance: RITUXIMAB
     Indication: Infusion
     Dosage: UNK (1000MG IN 600ML)
     Route: 042
     Dates: start: 20210719, end: 20210811

REACTIONS (2)
  - Rash erythematous [Unknown]
  - Pruritus [Unknown]

NARRATIVE: CASE EVENT DATE: 20210811
